FAERS Safety Report 23890215 (Version 2)
Quarter: 2024Q3

REPORT INFORMATION
  Report Type: Report from Study
  Country: IN (occurrence: IN)
  Receive Date: 20240523
  Receipt Date: 20240925
  Transmission Date: 20241016
  Serious: Yes (Other)
  Sender: NOVARTIS
  Company Number: IN-002147023-NVSC2024IN061107

PATIENT
  Age: 27 Year
  Sex: Male

DRUGS (1)
  1. CERTICAN [Suspect]
     Active Substance: EVEROLIMUS
     Indication: Renal transplant
     Dosage: 0.25 MG, BID
     Route: 048
     Dates: start: 20220831

REACTIONS (30)
  - Tubulointerstitial nephritis [Unknown]
  - Renal impairment [Unknown]
  - Cytomegalovirus infection [Unknown]
  - Hydronephrosis [Unknown]
  - Renal tubular necrosis [Unknown]
  - Osteonecrosis [Unknown]
  - Polyomavirus-associated nephropathy [Unknown]
  - Urosepsis [Unknown]
  - Acute kidney injury [Unknown]
  - Electrolyte imbalance [Unknown]
  - Hyponatraemia [Unknown]
  - Renal function test abnormal [Unknown]
  - Hypothyroidism [Unknown]
  - Urinary tract infection pseudomonal [Unknown]
  - Sepsis [Unknown]
  - Diverticulum [Unknown]
  - Urinary tract infection [Recovered/Resolved]
  - BK polyomavirus test positive [Unknown]
  - Nausea [Unknown]
  - Arthralgia [Unknown]
  - ABO incompatibility [Unknown]
  - Alport^s syndrome [Unknown]
  - Pyrexia [Unknown]
  - Arteriovenous fistula [Unknown]
  - Chills [Unknown]
  - Vomiting [Unknown]
  - Pain [Unknown]
  - Headache [Unknown]
  - Nephropathy [Unknown]
  - Ureteric dilatation [Unknown]

NARRATIVE: CASE EVENT DATE: 20221101
